FAERS Safety Report 9530957 (Version 1)
Quarter: 2013Q2

REPORT INFORMATION
  Report Type: Spontaneous
  Country: US (occurrence: None)
  Receive Date: 20130418
  Receipt Date: 20130418
  Transmission Date: 20140414
  Serious: Yes (Hospitalization)
  Sender: FDA-Public Use
  Company Number: 1301XAA004068

PATIENT
  Age: 45 Year
  Sex: Female

DRUGS (9)
  1. SINGULAIR [Suspect]
  2. VENTOLIN [Suspect]
  3. XYZAL [Suspect]
  4. PRAZEPAM [Suspect]
     Route: 048
  5. ANAFRANIL (CLOMIPRAMINE HYDROCHLORIDE) [Suspect]
     Route: 048
  6. ATARAX [Suspect]
     Route: 048
  7. ATHYMIL [Suspect]
     Route: 048
  8. TEGRETOL (CARBAMAZEPINE) UNKNOWN [Suspect]
     Dosage: REDUCED DOSE, ORAL
     Route: 048
  9. CLONAZEPAM (CLONAZEPAM) (CLONAZEPAM) [Suspect]
     Route: 048

REACTIONS (1)
  - Hepatitis [None]
